FAERS Safety Report 4995070-6 (Version None)
Quarter: 2006Q2

REPORT INFORMATION
  Report Type: 
  Country: None (occurrence: None)
  Receive Date: 20060503
  Receipt Date: 20060425
  Transmission Date: 20061013
  Serious: Yes (Other)
  Sender: FDA-Public Use
  Company Number: 220853

PATIENT
  Age: 40 Year
  Sex: Male
  Weight: 100 kg

DRUGS (6)
  1. XOLAIR [Suspect]
     Indication: ASTHMA
     Dosage: 225 MG, Q2W, SUBCUTANEOUS
     Route: 058
     Dates: start: 20050301
  2. FLONASE [Concomitant]
  3. GLUCOSAMINE (GLUCOSAMINE) [Concomitant]
  4. AZMACORT [Concomitant]
  5. SINGULAIR [Concomitant]
  6. CLARINEX [Concomitant]

REACTIONS (3)
  - DEPRESSION [None]
  - NIGHTMARE [None]
  - SUICIDAL IDEATION [None]
